FAERS Safety Report 7233660-0 (Version None)
Quarter: 2011Q1

REPORT INFORMATION
  Report Type: 
  Country: None (occurrence: None)
  Receive Date: 20110119
  Receipt Date: 20100106
  Transmission Date: 20110831
  Serious: No
  Sender: FDA-Public Use
  Company Number: US-TEVA-220572USA

PATIENT

DRUGS (1)
  1. COPAXONE [Suspect]

REACTIONS (1)
  - INJURY ASSOCIATED WITH DEVICE [None]
